FAERS Safety Report 12531705 (Version 1)
Quarter: 2016Q3

REPORT INFORMATION
  Report Type: Spontaneous
  Country: FR (occurrence: FR)
  Receive Date: 20160706
  Receipt Date: 20160706
  Transmission Date: 20161109
  Serious: Yes (Life-Threatening, Hospitalization)
  Sender: FDA-Public Use
  Company Number: FR-BAYER-2016-124804

PATIENT
  Age: 83 Year
  Sex: Female

DRUGS (9)
  1. CIFLOX [Suspect]
     Active Substance: CIPROFLOXACIN
     Dosage: UNK
  2. MIANSERIN [Concomitant]
     Active Substance: MIANSERIN
     Dosage: UNK
  3. CIFLOX [Suspect]
     Active Substance: CIPROFLOXACIN
     Dosage: 500 MG, BID
     Route: 048
     Dates: end: 20160425
  4. PREVISCAN [Suspect]
     Active Substance: FLUINDIONE
     Dosage: 0.5 DF, QD
     Route: 048
     Dates: start: 201504, end: 20160425
  5. PREVISCAN [Suspect]
     Active Substance: FLUINDIONE
     Dosage: UNK
     Dates: start: 20160504
  6. SOTALOL. [Concomitant]
     Active Substance: SOTALOL
     Dosage: UNK
  7. LEXOMIL [Concomitant]
     Active Substance: BROMAZEPAM
     Dosage: UNK
  8. DALACINE [Suspect]
     Active Substance: CLINDAMYCIN HYDROCHLORIDE
     Dosage: 600 MG, TID
     Route: 048
     Dates: end: 20160425
  9. OMEPRAZOLE. [Concomitant]
     Active Substance: OMEPRAZOLE
     Dosage: UNK

REACTIONS (3)
  - Anaemia [Recovered/Resolved]
  - Melaena [Recovered/Resolved]
  - International normalised ratio increased [Recovered/Resolved]

NARRATIVE: CASE EVENT DATE: 20160425
